FAERS Safety Report 14284376 (Version 10)
Quarter: 2018Q3

REPORT INFORMATION
  Report Type: Spontaneous
  Country: US (occurrence: US)
  Receive Date: 20171214
  Receipt Date: 20180831
  Transmission Date: 20181010
  Serious: Yes (Congenital Anomaly, Other)
  Sender: FDA-Public Use
  Company Number: PHEH2017US039355

PATIENT
  Sex: Male

DRUGS (3)
  1. ZOFRAN [Suspect]
     Active Substance: ONDANSETRON HYDROCHLORIDE
     Indication: FOETAL EXPOSURE DURING PREGNANCY
     Dosage: MOTHER DOSE: 4MG, UNK
     Route: 064
  2. ZOFRAN [Suspect]
     Active Substance: ONDANSETRON HYDROCHLORIDE
     Indication: FOETAL EXPOSURE DURING PREGNANCY
     Dosage: MOTHER DOSE: 4 MG PER 02 ML, Q6H, PRN
     Route: 064
  3. ZOFRAN ODT [Suspect]
     Active Substance: ONDANSETRON HYDROCHLORIDE
     Indication: FOETAL EXPOSURE DURING PREGNANCY
     Dosage: MOTHER DOSE: 4 MG, Q6H, PRN
     Route: 064

REACTIONS (73)
  - Atrial fibrillation [Unknown]
  - Neonatal respiratory distress syndrome [Recovered/Resolved]
  - Retinopathy of prematurity [Recovered/Resolved]
  - Left ventricular dilatation [Unknown]
  - Failure to thrive [Unknown]
  - Anaemia [Unknown]
  - Ear infection [Unknown]
  - Dyspnoea [Unknown]
  - Amblyopia [Unknown]
  - Constipation [Unknown]
  - Hereditary motor and sensory neuropathy [Unknown]
  - Spina bifida occulta [Unknown]
  - Plagiocephaly [Unknown]
  - Hypoglycaemia neonatal [Unknown]
  - Infantile apnoea [Unknown]
  - Respiratory failure [Unknown]
  - Bronchopulmonary dysplasia [Unknown]
  - Right ventricular hypertrophy [Unknown]
  - Developmental delay [Unknown]
  - Atelectasis neonatal [Unknown]
  - Premature baby [Unknown]
  - Abdominal discomfort [Unknown]
  - Selective eating disorder [Unknown]
  - Feeding intolerance [Unknown]
  - Congenital tracheomalacia [Unknown]
  - Left-to-right cardiac shunt [Unknown]
  - Phimosis [Unknown]
  - Tricuspid valve incompetence [Unknown]
  - Foetal growth restriction [Unknown]
  - Pulmonary valve incompetence [Recovered/Resolved]
  - Adrenal insufficiency [Unknown]
  - Cardiomegaly [Unknown]
  - Torticollis [Unknown]
  - Ventricular septal defect [Unknown]
  - Patent ductus arteriosus [Unknown]
  - Atrial septal defect [Unknown]
  - End stage renal disease [Unknown]
  - Deep vein thrombosis [Unknown]
  - Pneumonia aspiration [Unknown]
  - Hypoxia [Unknown]
  - Bronchial hyperreactivity [Unknown]
  - Wheezing [Unknown]
  - Lung disorder [Unknown]
  - Pneumonia respiratory syncytial viral [Unknown]
  - Left atrial dilatation [Unknown]
  - Foetal exposure during pregnancy [Unknown]
  - Irritability [Unknown]
  - Weight gain poor [Unknown]
  - Intraventricular haemorrhage neonatal [Unknown]
  - Pulmonary oedema [Recovered/Resolved]
  - Left ventricular enlargement [Unknown]
  - Hyperparathyroidism [Unknown]
  - Upper respiratory tract infection [Unknown]
  - Dysphagia [Unknown]
  - Retching [Unknown]
  - Congenital inguinal hernia [Unknown]
  - Cryptorchism [Unknown]
  - Bronchiolitis [Unknown]
  - Small for dates baby [Unknown]
  - Injury [Unknown]
  - Systolic hypertension [Unknown]
  - Gastrooesophageal reflux disease [Unknown]
  - Astigmatism [Unknown]
  - Cough [Unknown]
  - Pyrexia [Unknown]
  - Vesicoureteric reflux [Unknown]
  - Cardiac failure congestive [Unknown]
  - Bradycardia neonatal [Unknown]
  - Pulmonary hypertension [Unknown]
  - Low birth weight baby [Unknown]
  - Hyperbilirubinaemia neonatal [Unknown]
  - Asthma [Unknown]
  - Hypercapnia [Unknown]

NARRATIVE: CASE EVENT DATE: 20141213
